FAERS Safety Report 25805916 (Version 1)
Quarter: 2025Q3

REPORT INFORMATION
  Report Type: Spontaneous
  Country: CA (occurrence: CA)
  Receive Date: 20250916
  Receipt Date: 20250916
  Transmission Date: 20251021
  Serious: Yes (Hospitalization, Other)
  Sender: DR REDDYS
  Company Number: None

PATIENT
  Age: 45 Year
  Sex: Male

DRUGS (8)
  1. AZACITIDINE [Suspect]
     Active Substance: AZACITIDINE
     Indication: Acute myeloid leukaemia
     Route: 065
  2. AZACITIDINE [Suspect]
     Active Substance: AZACITIDINE
     Route: 065
  3. VENETOCLAX [Suspect]
     Active Substance: VENETOCLAX
     Indication: Acute myeloid leukaemia
     Route: 048
  4. VENETOCLAX [Suspect]
     Active Substance: VENETOCLAX
     Route: 048
  5. VENETOCLAX [Suspect]
     Active Substance: VENETOCLAX
  6. VENCLEXTA [Suspect]
     Active Substance: VENETOCLAX
     Indication: Acute myeloid leukaemia
     Route: 048
  7. VORICONAZOLE [Concomitant]
     Active Substance: VORICONAZOLE
     Indication: Product used for unknown indication
     Route: 065
  8. RISPERIDONE [Concomitant]
     Active Substance: RISPERIDONE
     Indication: Schizophrenia

REACTIONS (3)
  - Febrile neutropenia [Unknown]
  - Myelosuppression [Unknown]
  - Off label use [Unknown]
